FAERS Safety Report 23624608 (Version 2)
Quarter: 2024Q2

REPORT INFORMATION
  Report Type: Report from Study
  Country: US (occurrence: US)
  Receive Date: 20240313
  Receipt Date: 20240415
  Transmission Date: 20240715
  Serious: Yes (Other)
  Sender: FDA-Public Use
  Company Number: US-UCBSA-2023055468

PATIENT
  Sex: Male
  Weight: 52.608 kg

DRUGS (5)
  1. FINTEPLA [Interacting]
     Active Substance: FENFLURAMINE
     Indication: Severe myoclonic epilepsy of infancy
     Dosage: 4.7 MILLILITER, 2X/DAY (BID)
     Dates: start: 20220108
  2. FINTEPLA [Interacting]
     Active Substance: FENFLURAMINE
     Dosage: 4.7 MILLILITER, 2X/DAY (BID)
  3. FINTEPLA [Interacting]
     Active Substance: FENFLURAMINE
     Dosage: 4.7 MILLILITER, 2X/DAY (BID)
  4. DEPAKOTE [Interacting]
     Active Substance: DIVALPROEX SODIUM
     Indication: Product used for unknown indication
     Dosage: UNK
  5. DEPAKOTE [Interacting]
     Active Substance: DIVALPROEX SODIUM
     Dosage: DOSE DECREASE

REACTIONS (6)
  - Seizure [Recovered/Resolved with Sequelae]
  - Weight decreased [Recovered/Resolved with Sequelae]
  - Toxicity to various agents [Recovered/Resolved with Sequelae]
  - Asthenia [Recovered/Resolved with Sequelae]
  - Food refusal [Recovered/Resolved with Sequelae]
  - Drug interaction [Unknown]

NARRATIVE: CASE EVENT DATE: 20230101
